FAERS Safety Report 21511588 (Version 1)
Quarter: 2022Q4

REPORT INFORMATION
  Report Type: Spontaneous
  Country: US (occurrence: US)
  Receive Date: 20221027
  Receipt Date: 20221027
  Transmission Date: 20230113
  Serious: Yes (Other)
  Sender: FDA-Public Use
  Company Number: US-NOVOPROD-971461

PATIENT
  Age: 49 Year
  Sex: Male

DRUGS (1)
  1. OZEMPIC [Suspect]
     Active Substance: SEMAGLUTIDE
     Indication: Glucose tolerance impaired
     Dosage: 2 MG
     Route: 058
     Dates: start: 20221015, end: 20221015

REACTIONS (7)
  - Loss of consciousness [Recovered/Resolved]
  - Tremor [Unknown]
  - Pain [Unknown]
  - Nausea [Unknown]
  - Vomiting [Recovered/Resolved]
  - Vomiting [Unknown]
  - Off label use [Recovered/Resolved]

NARRATIVE: CASE EVENT DATE: 20221001
